FAERS Safety Report 12746076 (Version 24)
Quarter: 2022Q3

REPORT INFORMATION
  Report Type: Report from Study
  Country: AU (occurrence: AU)
  Receive Date: 20160915
  Receipt Date: 20220825
  Transmission Date: 20221027
  Serious: Yes (Life-Threatening, Hospitalization)
  Sender: FDA-Public Use
  Company Number: AU-SA-2015SA093741

PATIENT
  Age: 52 Year
  Sex: Female

DRUGS (9)
  1. ALEMTUZUMAB [Suspect]
     Active Substance: ALEMTUZUMAB
     Indication: Relapsing multiple sclerosis
     Dosage: 12 MG,QD
     Route: 041
     Dates: start: 20150522, end: 20150526
  2. ALEMTUZUMAB [Suspect]
     Active Substance: ALEMTUZUMAB
     Dosage: 12 MG,QD
     Route: 041
     Dates: start: 20160624, end: 20160626
  3. RANITIDINE HYDROCHLORIDE [Concomitant]
     Active Substance: RANITIDINE HYDROCHLORIDE
     Indication: Prophylaxis
     Dosage: 20 ML,QD
     Route: 048
     Dates: start: 20150523, end: 20150524
  4. DOCUSATE SODIUM\SENNOSIDES A AND B [Concomitant]
     Active Substance: DOCUSATE SODIUM\SENNOSIDES A AND B
     Indication: Prophylaxis
     Dosage: 2 DF,QD
     Route: 048
     Dates: start: 20150525, end: 20150525
  5. SORBITOL [Concomitant]
     Active Substance: SORBITOL
     Indication: Constipation prophylaxis
     Dosage: 20 ML,QD
     Route: 048
     Dates: start: 20150525, end: 20150525
  6. METHYLPREDNISOLONE [Concomitant]
     Active Substance: METHYLPREDNISOLONE
     Indication: Prophylaxis
     Dosage: 1 G,QD
     Route: 042
     Dates: start: 20150522, end: 20150526
  7. ZYRTEC [Concomitant]
     Active Substance: CETIRIZINE HYDROCHLORIDE
     Indication: Prophylaxis
     Dosage: 10 MG,QD
     Route: 048
     Dates: start: 20150522
  8. VALACYCLOVIR HYDROCHLORIDE [Concomitant]
     Active Substance: VALACYCLOVIR HYDROCHLORIDE
     Indication: Prophylaxis
     Dosage: 1000 MG,QD
     Route: 048
     Dates: start: 20150522
  9. ACETAMINOPHEN [Concomitant]
     Active Substance: ACETAMINOPHEN
     Dosage: 1 G,QD
     Route: 048
     Dates: start: 20150322

REACTIONS (17)
  - Immune thrombocytopenia [Recovered/Resolved]
  - Myalgia [Recovered/Resolved]
  - Liver function test increased [Recovered/Resolved]
  - Drug eruption [Recovered/Resolved]
  - Urinary tract infection [Recovered/Resolved]
  - Headache [Recovered/Resolved]
  - Fatigue [Recovered/Resolved]
  - Pain [Recovered/Resolved]
  - Influenza like illness [Recovered/Resolved]
  - Basedow^s disease [Recovering/Resolving]
  - Dyspepsia [Recovered/Resolved]
  - Tooth fracture [Recovered/Resolved]
  - Poor quality sleep [Recovered/Resolved]
  - Carpal tunnel syndrome [Recovered/Resolved]
  - Dyskinesia [Not Recovered/Not Resolved]
  - Pain in extremity [Unknown]
  - Urinary tract infection [Recovered/Resolved]

NARRATIVE: CASE EVENT DATE: 20150522
